FAERS Safety Report 7177249-0 (Version None)
Quarter: 2010Q4

REPORT INFORMATION
  Report Type: 
  Country: None (occurrence: None)
  Receive Date: 20101220
  Receipt Date: 20101213
  Transmission Date: 20110411
  Serious: Yes (Disabling)
  Sender: FDA-Public Use
  Company Number: FR-ROCHE-731773

PATIENT
  Sex: Female
  Weight: 100 kg

DRUGS (4)
  1. ROACTEMRA [Suspect]
     Indication: RHEUMATOID ARTHRITIS
     Dosage: FORM:INFUSION
     Route: 042
     Dates: start: 20100830
  2. NOVATREX [Concomitant]
     Route: 048
  3. CORTANCYL [Concomitant]
     Route: 048
  4. NEXIUM [Concomitant]
     Dosage: DOSE:20
     Route: 048

REACTIONS (3)
  - EYELID OEDEMA [None]
  - LACRIMATION DECREASED [None]
  - OCULAR HYPERAEMIA [None]
